FAERS Safety Report 8965731 (Version 1)
Quarter: 2012Q4

REPORT INFORMATION
  Report Type: Spontaneous
  Country: FR (occurrence: None)
  Receive Date: 20121206
  Receipt Date: 20121206
  Transmission Date: 20130627
  Serious: Yes (Death, Other)
  Sender: FDA-Public Use
  Company Number: VAL_01020_2012

PATIENT
  Age: 54 Year
  Sex: Male

DRUGS (4)
  1. BROMOCRIPTINE [Suspect]
     Indication: PRODUCT USED FOR UNKNOWN INDICATION
     Dosage: (DF) , (2.5 mg, daily (five times) )
  2. QUINAGOLINE (UNKNOWN) [Concomitant]
  3. TEMOZOLOMIDE (5 MONTHS UNTIL NOT CONTINUING) [Concomitant]
  4. CARBOPLATINE (UNKNOWN UNTIL NOT CONTINUING) [Concomitant]

REACTIONS (3)
  - Prolactinoma [None]
  - Visual impairment [None]
  - Metastatic neoplasm [None]
